FAERS Safety Report 14471628 (Version 2)
Quarter: 2018Q1

REPORT INFORMATION
  Report Type: Spontaneous
  Country: VN (occurrence: VN)
  Receive Date: 20180131
  Receipt Date: 20180209
  Transmission Date: 20180509
  Serious: Yes (Life-Threatening)
  Sender: FDA-Public Use
  Company Number: VN-GE HEALTHCARE LIFE SCIENCES-2018CSU000422

PATIENT

DRUGS (1)
  1. OMNIPAQUE [Suspect]
     Active Substance: IOHEXOL
     Indication: RECTAL POLYP
     Dosage: 80 ML, SINGLE
     Route: 042
     Dates: start: 20180103, end: 20180103

REACTIONS (3)
  - Irritability [Unknown]
  - Eye oedema [Unknown]
  - Rash [Unknown]

NARRATIVE: CASE EVENT DATE: 20180103
